FAERS Safety Report 9636636 (Version 2)
Quarter: 2014Q1

REPORT INFORMATION
  Report Type: Report from Study
  Country: JP (occurrence: JP)
  Receive Date: 20131021
  Receipt Date: 20140314
  Transmission Date: 20141002
  Serious: Yes (Life-Threatening, Hospitalization)
  Sender: FDA-Public Use
  Company Number: JP-B.I. PHARMACEUTICALS,INC./RIDGEFIELD-2013-BI-33345NB

PATIENT
  Age: 64 Year
  Sex: Female
  Weight: 50 kg

DRUGS (7)
  1. MIRAPEX LA [Suspect]
     Indication: PARKINSON^S DISEASE
     Dosage: 1.5 MG
     Route: 048
     Dates: start: 20121221, end: 20130321
  2. TAKEPRON / LANSOPRAZOLE [Concomitant]
     Dosage: 30 MG
     Route: 048
  3. QUAZEPAM / QUAZEPAM [Concomitant]
     Indication: PARKINSON^S DISEASE
     Dosage: 15 MG
     Route: 048
  4. MYSLEE / ZOLPIDEM TARTRATE [Concomitant]
     Indication: PARKINSON^S DISEASE
     Dosage: 5 MG
     Route: 048
  5. MENESIT / LEVODOPA_CARBIDOPA HYDRATE [Concomitant]
     Indication: PARKINSON^S DISEASE
     Dosage: 900 MG
     Route: 048
  6. PURSENNID / SENNOSIDE [Concomitant]
     Indication: PARKINSON^S DISEASE
     Dosage: 24 MG
     Route: 048
  7. VOLTAREN TAPE / DICLOFENAC SODIUM [Concomitant]
     Indication: PARKINSON^S DISEASE
     Route: 062

REACTIONS (1)
  - Cardio-respiratory arrest [Recovered/Resolved]
